FAERS Safety Report 14385971 (Version 2)
Quarter: 2018Q3

REPORT INFORMATION
  Report Type: Spontaneous
  Country: RO (occurrence: RO)
  Receive Date: 20180115
  Receipt Date: 20180920
  Transmission Date: 20181010
  Serious: Yes (Death, Life-Threatening, Hospitalization, Other)
  Sender: FDA-Public Use
  Company Number: RO-GILEAD-2018-0315296

PATIENT
  Age: 66 Year
  Sex: Female

DRUGS (7)
  1. HARVONI [Suspect]
     Active Substance: LEDIPASVIR\SOFOSBUVIR
     Indication: HEPATIC CIRRHOSIS
  2. NORMIX [Concomitant]
     Active Substance: RIFAXIMIN
     Indication: HEPATIC CIRRHOSIS
     Dosage: 600 MG, UNK
     Route: 048
     Dates: start: 2015, end: 20180103
  3. HARVONI [Suspect]
     Active Substance: LEDIPASVIR\SOFOSBUVIR
     Indication: CHILD-PUGH-TURCOTTE SCORE
  4. URSOFALK [Concomitant]
     Active Substance: URSODIOL
     Indication: HEPATIC CIRRHOSIS
     Dosage: 500 MG, UNK
     Route: 048
     Dates: start: 2015, end: 20180103
  5. HARVONI [Suspect]
     Active Substance: LEDIPASVIR\SOFOSBUVIR
     Indication: HEPATIC CIRRHOSIS
  6. HARVONI [Suspect]
     Active Substance: LEDIPASVIR\SOFOSBUVIR
     Indication: HEPATITIS C
     Dosage: 1 DF, QD
     Route: 048
     Dates: start: 20170809, end: 20171031
  7. PROPRANOLOL [Concomitant]
     Active Substance: PROPRANOLOL HYDROCHLORIDE
     Indication: VARICES OESOPHAGEAL
     Dosage: 8 MG, UNK
     Route: 048
     Dates: start: 2015, end: 20180103

REACTIONS (19)
  - Tachycardia [Not Recovered/Not Resolved]
  - Jaundice [Not Recovered/Not Resolved]
  - Right ventricular failure [Fatal]
  - Dyspnoea [Not Recovered/Not Resolved]
  - Rales [Not Recovered/Not Resolved]
  - Multiple organ dysfunction syndrome [Fatal]
  - Tachypnoea [Not Recovered/Not Resolved]
  - Viral myocarditis [Fatal]
  - Bradycardia [Not Recovered/Not Resolved]
  - General physical condition abnormal [Not Recovered/Not Resolved]
  - Orthopnoea [Not Recovered/Not Resolved]
  - Hypotension [Not Recovered/Not Resolved]
  - Heart rate irregular [Not Recovered/Not Resolved]
  - Confusional state [Not Recovered/Not Resolved]
  - Atrial fibrillation [Unknown]
  - Cardiogenic shock [Fatal]
  - Cough [Not Recovered/Not Resolved]
  - Breath sounds abnormal [Not Recovered/Not Resolved]
  - Pallor [Not Recovered/Not Resolved]

NARRATIVE: CASE EVENT DATE: 20180103
